FAERS Safety Report 5369416-3 (Version None)
Quarter: 2007Q2

REPORT INFORMATION
  Report Type: 
  Country: None (occurrence: None)
  Receive Date: 20070625
  Receipt Date: 20070611
  Transmission Date: 20071010
  Serious: Yes (Hospitalization, Other)
  Sender: FDA-Public Use
  Company Number: JP-PURDUE-DEU_2007_0003386

PATIENT
  Age: 4 Year
  Sex: Female

DRUGS (1)
  1. THEOPHYLLINE [Suspect]
     Indication: ASTHMA
     Route: 065

REACTIONS (10)
  - BLOOD CREATINE PHOSPHOKINASE INCREASED [None]
  - DRUG LEVEL INCREASED [None]
  - ENCEPHALOPATHY [None]
  - HYPERAMMONAEMIA [None]
  - HYPERGLYCAEMIA [None]
  - HYPERPYREXIA [None]
  - INTERLEUKIN LEVEL INCREASED [None]
  - SERUM FERRITIN INCREASED [None]
  - STATUS EPILEPTICUS [None]
  - VITAMIN B6 DECREASED [None]
